FAERS Safety Report 22300854 (Version 2)
Quarter: 2023Q2

REPORT INFORMATION
  Report Type: Report from Study
  Country: US (occurrence: US)
  Receive Date: 20230509
  Receipt Date: 20230607
  Transmission Date: 20230722
  Serious: No
  Sender: FDA-Public Use
  Company Number: US-SANOFI-01598538

PATIENT
  Age: 50 Year
  Sex: Female

DRUGS (2)
  1. DUPILUMAB [Suspect]
     Active Substance: DUPILUMAB
     Indication: Alopecia
     Dosage: 300 MG, QOW
  2. DUPILUMAB [Suspect]
     Active Substance: DUPILUMAB
     Indication: Skin disorder

REACTIONS (2)
  - Malaise [Unknown]
  - Product use in unapproved indication [Unknown]
